FAERS Safety Report 19551734 (Version 1)
Quarter: 2021Q3

REPORT INFORMATION
  Report Type: Spontaneous
  Country: GB (occurrence: GB)
  Receive Date: 20210715
  Receipt Date: 20210715
  Transmission Date: 20211014
  Serious: Yes (Other)
  Sender: FDA-Public Use
  Company Number: GB-ACCORD-231118

PATIENT
  Age: 26 Year
  Sex: Female
  Weight: 90 kg

DRUGS (3)
  1. CYPROTERONE [Concomitant]
     Active Substance: CYPROTERONE
  2. ESTRADOT [Concomitant]
     Active Substance: ESTRADIOL
  3. FLUOXETINE [Suspect]
     Active Substance: FLUOXETINE HYDROCHLORIDE
     Indication: DEPRESSION SUICIDAL
     Dosage: 20 MG
     Route: 048
     Dates: start: 20210622, end: 20210627

REACTIONS (1)
  - Feeling abnormal [Recovering/Resolving]
